FAERS Safety Report 4549579-X (Version None)
Quarter: 2005Q1

REPORT INFORMATION
  Report Type: 
  Country: None (occurrence: None)
  Receive Date: 20050106
  Receipt Date: 20041227
  Transmission Date: 20050727
  Serious: Yes (Hospitalization)
  Sender: FDA-Public Use
  Company Number: 2004118170

PATIENT
  Age: 56 Year
  Sex: Male

DRUGS (5)
  1. DISOPYRAMIDE PHOSPHATE [Suspect]
     Indication: ILL-DEFINED DISORDER
     Dosage: ORAL
     Route: 048
     Dates: start: 20040101
  2. FAMOTIDINE [Concomitant]
     Indication: ILL-DEFINED DISORDER
     Dates: start: 20040101
  3. WARFARIN SODIUM [Suspect]
     Indication: ILL-DEFINED DISORDER
     Dosage: ORAL
     Route: 048
     Dates: start: 20040101
  4. DIPYRIDAMOLE [Suspect]
     Indication: ILL-DEFINED DISORDER
     Dosage: ORAL
     Route: 048
     Dates: start: 20040101
  5. CANDESARTAN (CANDESARTAN) [Concomitant]
     Dates: start: 20040101

REACTIONS (7)
  - ASCITES [None]
  - HAEMODIALYSIS [None]
  - HEPATIC ATROPHY [None]
  - HEPATIC ENCEPHALOPATHY [None]
  - HEPATITIS ACUTE [None]
  - HEPATITIS FULMINANT [None]
  - LIVER TRANSPLANT [None]
